FAERS Safety Report 11604515 (Version 1)
Quarter: 2015Q4

REPORT INFORMATION
  Report Type: Spontaneous
  Country: US (occurrence: None)
  Receive Date: 20151006
  Receipt Date: 20151006
  Transmission Date: 20160304
  Serious: No
  Sender: FDA-Public Use
  Company Number: None

PATIENT
  Sex: Male

DRUGS (4)
  1. AMIODARONE [Suspect]
     Active Substance: AMIODARONE
     Indication: ATRIAL FIBRILLATION
     Route: 048
     Dates: start: 20150910, end: 20151005
  2. XRELTO [Concomitant]
  3. CLONAZAPAM [Concomitant]
  4. FEW VITAMINS [Concomitant]

REACTIONS (7)
  - Nausea [None]
  - Hypoaesthesia [None]
  - Abdominal pain upper [None]
  - Skin burning sensation [None]
  - Headache [None]
  - Insomnia [None]
  - Dizziness [None]
